FAERS Safety Report 4396178-9 (Version None)
Quarter: 2004Q3

REPORT INFORMATION
  Report Type: 
  Country: None (occurrence: None)
  Receive Date: 20040709
  Receipt Date: 20040701
  Transmission Date: 20050211
  Serious: Yes (Hospitalization)
  Sender: FDA-Public Use
  Company Number: TPA2004A00811

PATIENT
  Age: 88 Year
  Sex: Male
  Weight: 52.1637 kg

DRUGS (4)
  1. ACTOS [Suspect]
     Indication: DIABETES MELLITUS NON-INSULIN-DEPENDENT
     Dosage: 15 MG, 1 IN 1 D, PER ORAL
     Route: 048
  2. PREVACID [Concomitant]
  3. GLYBURIDE (GLIBENCLAMIDE) (2.5 MILLIGRAM) [Concomitant]
  4. HYDROCHLOROTHIAZIDE (HYDROCHLOROTHIAZIDE) (25 MILLIGRAM) [Concomitant]

REACTIONS (5)
  - BLADDER CANCER [None]
  - DYSPNOEA [None]
  - PNEUMONIA [None]
  - PULMONARY FIBROSIS [None]
  - WEIGHT DECREASED [None]
